FAERS Safety Report 8313390-4 (Version None)
Quarter: 2012Q2

REPORT INFORMATION
  Report Type: 
  Country: None (occurrence: None)
  Receive Date: 20120426
  Receipt Date: 20120420
  Transmission Date: 20120825
  Serious: Yes (Death, Hospitalization)
  Sender: FDA-Public Use
  Company Number: PHHY2012FR033675

PATIENT
  Sex: Male

DRUGS (7)
  1. NITROGLYCERIN [Concomitant]
     Indication: MYOCARDIAL ISCHAEMIA
     Dosage: 1 DF, DAILY
  2. CLOPIDOGREL BISULFATE AND ASPIRIN [Concomitant]
     Dosage: 1 DF, QD
     Route: 048
     Dates: end: 20120209
  3. FUROSEMIDE [Concomitant]
     Dosage: 400 MG, QD
     Route: 048
  4. GLEEVEC [Suspect]
     Indication: CHRONIC MYELOID LEUKAEMIA
     Dosage: 3 DF, DAILY
     Route: 048
     Dates: start: 20110422
  5. RAMIPRIL [Concomitant]
     Dosage: 5 MG, QD
     Route: 048
     Dates: end: 20120209
  6. BISOPROLOL FUMARATE [Concomitant]
     Dosage: 1 DF, QD
     Route: 048
     Dates: end: 20120209
  7. ALLOPURINOL [Concomitant]
     Indication: HYPERURICAEMIA
     Dosage: 300 MG, QD
     Route: 048
     Dates: start: 20110401, end: 20120209

REACTIONS (7)
  - ISCHAEMIC STROKE [None]
  - HAEMODYNAMIC INSTABILITY [None]
  - BLOOD PRESSURE INCREASED [None]
  - CARDIOMEGALY [None]
  - EJECTION FRACTION DECREASED [None]
  - COMA [None]
  - LIMB DISCOMFORT [None]
